FAERS Safety Report 17750068 (Version 5)
Quarter: 2020Q2

REPORT INFORMATION
  Report Type: Spontaneous
  Country: US (occurrence: US)
  Receive Date: 20200506
  Receipt Date: 20200623
  Transmission Date: 20200714
  Serious: No
  Sender: FDA-Public Use
  Company Number: US-JNJFOC-20200503512

PATIENT
  Age: 61 Year
  Sex: Female
  Weight: 74.46 kg

DRUGS (2)
  1. STELARA [Suspect]
     Active Substance: USTEKINUMAB
  2. STELARA [Suspect]
     Active Substance: USTEKINUMAB
     Indication: PSORIATIC ARTHROPATHY
     Dosage: STELARA PRE-FILLED SYRINGE - ULTRASAFE 45.00 MG/0.50 ML
     Route: 058

REACTIONS (3)
  - Self-medication [Unknown]
  - Drug delivery system malfunction [Unknown]
  - Product dose omission [Unknown]

NARRATIVE: CASE EVENT DATE: 20200501
